FAERS Safety Report 18516671 (Version 1)
Quarter: 2020Q4

REPORT INFORMATION
  Report Type: Spontaneous
  Country: PL (occurrence: PL)
  Receive Date: 20201118
  Receipt Date: 20201118
  Transmission Date: 20210114
  Serious: Yes (Other)
  Sender: FDA-Public Use
  Company Number: PL-TEVA-2020-PL-1849148

PATIENT
  Age: 70 Year
  Sex: Female
  Weight: 68 kg

DRUGS (5)
  1. DOCETAXEL. [Suspect]
     Active Substance: DOCETAXEL
     Dosage: UNIT DOSE 128.29MG
     Route: 042
     Dates: start: 20180216, end: 20180622
  2. ONDANSETRON [Concomitant]
     Active Substance: ONDANSETRON
     Dosage: UNIT DOSE 8MG
     Route: 042
     Dates: start: 20180216
  3. TRASTUZUMAB. [Concomitant]
     Active Substance: TRASTUZUMAB
     Dosage: UNIT DOSE 408MG
     Route: 042
     Dates: start: 20180216
  4. DEXAMETHAZON [Concomitant]
     Active Substance: DEXAMETHASONE
     Dosage: UNIT DOSE 8MG
     Route: 042
     Dates: start: 20180216
  5. PERTUZUMAB. [Concomitant]
     Active Substance: PERTUZUMAB
     Dosage: UNIT DOSE 420MG
     Route: 042
     Dates: start: 20180216

REACTIONS (3)
  - Nail toxicity [Recovering/Resolving]
  - Neuropathy peripheral [Recovering/Resolving]
  - Oral disorder [Recovering/Resolving]

NARRATIVE: CASE EVENT DATE: 20180622
